FAERS Safety Report 5664039-0 (Version None)
Quarter: 2008Q1

REPORT INFORMATION
  Report Type: 
  Country: None (occurrence: None)
  Receive Date: 20080314
  Receipt Date: 20080307
  Transmission Date: 20080703
  Serious: Yes (Other)
  Sender: FDA-Public Use
  Company Number: JP-BRISTOL-MYERS SQUIBB COMPANY-14013551

PATIENT
  Age: 68 Year
  Sex: Female
  Weight: 44 kg

DRUGS (10)
  1. ARIPIPRAZOLE [Suspect]
     Indication: SCHIZOPHRENIA, PARANOID TYPE
     Dosage: 18SEP07-18MG, 27SEP07-24MG, 29NOV07-12MG, 06DEC07-6MG. DISCONTINUED ON 26-DEC-2007
     Route: 048
     Dates: start: 20070906, end: 20071226
  2. HALOPERIDOL [Suspect]
     Indication: SCHIZOPHRENIA, PARANOID TYPE
     Dosage: 6SEP07-26NOV07-6MG,27NOV07 TO 28NOV07-10MG,29NOV07 TO CONTINUING8MG DECREASED TO 6MG/DAY ON 06SEP07
     Route: 048
     Dates: start: 20070517
  3. BIPERIDEN HYDROCHLORIDE TAB [Suspect]
     Indication: EXTRAPYRAMIDAL DISORDER
     Route: 048
     Dates: start: 20070517
  4. FLUNITRAZEPAM [Suspect]
     Indication: SCHIZOPHRENIA, PARANOID TYPE
     Route: 048
     Dates: start: 20070517
  5. LEVOMEPROMAZINE MALEATE [Suspect]
     Indication: SCHIZOPHRENIA
     Dosage: 20SEP07 TO 26SEP07- 10MG, 27NOV07 TO 29NOV07- 10MG, 30NOV TO CONT-15MG
     Route: 048
     Dates: start: 20070920
  6. PROMETHAZINE [Suspect]
  7. MOSAPRIDE CITRATE [Concomitant]
     Route: 048
     Dates: start: 20070517
  8. LOXOPROFEN SODIUM [Concomitant]
     Route: 048
     Dates: start: 20070517, end: 20080115
  9. SODIUM PICOSULFATE [Concomitant]
     Route: 048
     Dates: start: 20070517
  10. RISPERIDONE [Concomitant]
     Indication: SCHIZOPHRENIA
     Dosage: 20SEP07 TO 21SEP07 - 3MG; 22SEP07 TO 25SEP07 - 2MG; 26SEP07 TO 27SEP07 - 1MG.
     Route: 048
     Dates: start: 20070920

REACTIONS (5)
  - DELUSION [None]
  - FALL [None]
  - FEMUR FRACTURE [None]
  - HALLUCINATION [None]
  - RIB FRACTURE [None]
